FAERS Safety Report 12224685 (Version 1)
Quarter: 2016Q1

REPORT INFORMATION
  Report Type: Spontaneous
  Country: US (occurrence: US)
  Receive Date: 20160331
  Receipt Date: 20160331
  Transmission Date: 20160526
  Serious: No
  Sender: FDA-Public Use
  Company Number: US-ASTRAZENECA-2016SE31706

PATIENT
  Age: 765 Month
  Sex: Female
  Weight: 70.3 kg

DRUGS (1)
  1. BYDUREON [Suspect]
     Active Substance: EXENATIDE
     Indication: TYPE 2 DIABETES MELLITUS
     Route: 058
     Dates: start: 201601

REACTIONS (5)
  - Abdominal pain upper [Unknown]
  - Injection site bruising [Unknown]
  - Blood cholesterol abnormal [Unknown]
  - Feeling abnormal [Unknown]
  - Injection site nodule [Unknown]

NARRATIVE: CASE EVENT DATE: 201603
